FAERS Safety Report 7099646-4 (Version None)
Quarter: 2010Q4

REPORT INFORMATION
  Report Type: 
  Country: None (occurrence: None)
  Receive Date: 20101112
  Receipt Date: 20080930
  Transmission Date: 20110411
  Serious: No
  Sender: FDA-Public Use
  Company Number: US-KINGPHARMUSA00001-K200801152

PATIENT
  Age: 49 Year
  Sex: Male
  Weight: 87.528 kg

DRUGS (8)
  1. AVINZA [Suspect]
     Indication: INTERVERTEBRAL DISC DEGENERATION
     Dosage: 60 MG, QD
     Route: 048
     Dates: start: 20080904
  2. AVINZA [Suspect]
     Indication: OSTEOARTHRITIS
     Dosage: 60 MG, BID
     Route: 048
     Dates: end: 20080923
  3. AVINZA [Suspect]
     Indication: RADICULOPATHY
     Dosage: 120 MG, QD
     Route: 048
     Dates: start: 20080923
  4. RESTORIL                           /00393701/ [Concomitant]
     Dosage: 30 MG, QHS
  5. ZOLOFT [Concomitant]
     Dosage: 100 MG, BID
  6. TRAZODONE [Concomitant]
     Dosage: 100 MG, 2 QHS
  7. LODINE [Concomitant]
     Dosage: 400 MG, BID
  8. VISTARIL [Concomitant]
     Dosage: 50 MG, BID

REACTIONS (8)
  - ANXIETY [None]
  - BLOOD PRESSURE INCREASED [None]
  - CLAUSTROPHOBIA [None]
  - DRUG INEFFECTIVE [None]
  - HEART RATE INCREASED [None]
  - HYPERHIDROSIS [None]
  - PSYCHOMOTOR HYPERACTIVITY [None]
  - WITHDRAWAL SYNDROME [None]
